FAERS Safety Report 12052675 (Version 1)
Quarter: 2016Q1

REPORT INFORMATION
  Report Type: Report from Study
  Country: US (occurrence: US)
  Receive Date: 20160209
  Receipt Date: 20160209
  Transmission Date: 20160526
  Serious: No
  Sender: FDA-Public Use
  Company Number: US-ABBVIE-15P-163-1448079-00

PATIENT
  Age: 37 Year
  Weight: 57.2 kg

DRUGS (26)
  1. HUMIRA [Suspect]
     Active Substance: ADALIMUMAB
     Indication: CROHN^S DISEASE
     Route: 058
     Dates: start: 20120917, end: 20130724
  2. TUMS [Concomitant]
     Active Substance: CALCIUM CARBONATE
     Indication: DYSPEPSIA
     Dosage: 2 PILL
     Route: 048
     Dates: start: 20130601, end: 20130724
  3. PREDNISONE. [Concomitant]
     Active Substance: PREDNISONE
     Route: 048
     Dates: start: 20121014, end: 20130104
  4. TYLENOL COLD DAYTIME [Concomitant]
     Dosage: 2 PILLS
     Route: 048
     Dates: start: 20130214, end: 20130214
  5. HYDROCORTISONE ACETATE. [Concomitant]
     Active Substance: HYDROCORTISONE ACETATE
     Indication: COLITIS ULCERATIVE
     Dosage: VAGINAL
     Route: 054
     Dates: start: 20130221, end: 20130724
  6. PREDNISONE. [Concomitant]
     Active Substance: PREDNISONE
     Indication: COLITIS ULCERATIVE
     Route: 048
     Dates: start: 20121201, end: 20121214
  7. PREDNISONE. [Concomitant]
     Active Substance: PREDNISONE
     Route: 048
     Dates: start: 20121117
  8. DHA [Concomitant]
     Active Substance: DIETARY SUPPLEMENT
     Indication: PRODUCT USED FOR UNKNOWN INDICATION
     Dosage: 1 PILL
     Route: 048
     Dates: start: 20121014, end: 20130724
  9. TUMS [Concomitant]
     Active Substance: CALCIUM CARBONATE
     Dosage: 1 PILL
     Route: 048
     Dates: start: 20130307, end: 20130603
  10. PREDNISONE. [Concomitant]
     Active Substance: PREDNISONE
     Route: 048
     Dates: start: 20121103, end: 20121116
  11. VITAMINS NOS [Concomitant]
     Active Substance: VITAMINS
     Indication: PRODUCT USED FOR UNKNOWN INDICATION
     Dosage: 1 PILL
     Route: 048
     Dates: start: 20121014, end: 20130724
  12. RHOGAM [Concomitant]
     Active Substance: HUMAN RHO(D) IMMUNE GLOBULIN
     Indication: PRODUCT USED FOR UNKNOWN INDICATION
     Dosage: 1 SHOT
     Route: 050
     Dates: start: 20130426, end: 20130426
  13. TDAP IPV [Concomitant]
     Active Substance: DIPHTHERIA AND TETANUS TOXOIDS AND ACELLULAR PERTUSSIS ADSORBED AND INACTIVATED POLIOVIRUS VACCINE
     Indication: PRODUCT USED FOR UNKNOWN INDICATION
     Dosage: 1 SHOT
     Route: 050
     Dates: start: 20130605, end: 20130605
  14. HUMIRA [Suspect]
     Active Substance: ADALIMUMAB
     Indication: COLITIS ULCERATIVE
     Route: 058
     Dates: start: 20120820, end: 20120820
  15. HUMIRA [Suspect]
     Active Substance: ADALIMUMAB
     Route: 058
     Dates: start: 20120903, end: 20120903
  16. ASACOL [Concomitant]
     Active Substance: MESALAMINE
     Indication: COLITIS ULCERATIVE
     Route: 048
     Dates: start: 20121014, end: 20130724
  17. PREDNISONE. [Concomitant]
     Active Substance: PREDNISONE
     Indication: CROHN^S DISEASE
     Route: 048
     Dates: start: 20121215, end: 20130724
  18. FLUVIRIN NOS [Concomitant]
     Active Substance: INFLUENZA VIRUS VACCINE
     Indication: PRODUCT USED FOR UNKNOWN INDICATION
     Dosage: 1 SHOT
     Route: 050
     Dates: start: 20121031, end: 20121031
  19. TYLENOL COLD NIGHTTIME [Concomitant]
     Indication: PRODUCT USED FOR UNKNOWN INDICATION
     Dosage: 1 PILL
     Route: 048
     Dates: start: 20130212, end: 20130213
  20. TUMS [Concomitant]
     Active Substance: CALCIUM CARBONATE
     Dosage: 1 PILL
     Route: 048
     Dates: start: 20121014, end: 20130104
  21. TUMS [Concomitant]
     Active Substance: CALCIUM CARBONATE
     Dosage: 1 PILL
     Route: 048
     Dates: start: 20130105, end: 20130107
  22. TYLENOL EXTRA STRENGTH [Concomitant]
     Active Substance: ACETAMINOPHEN
     Indication: HEADACHE
     Dosage: 2 PILL
     Route: 048
     Dates: start: 20130601, end: 20130731
  23. HYDROCODONE BITARTRATE AND ACETAMINOPHEN [Concomitant]
     Active Substance: ACETAMINOPHEN\HYDROCODONE BITARTRATE
     Indication: COLITIS ULCERATIVE
     Route: 054
     Dates: start: 20121014, end: 20130122
  24. TYLENOL PM EXTRA STRENGTH [Concomitant]
     Active Substance: ACETAMINOPHEN\DIPHENHYDRAMINE HYDROCHLORIDE
     Indication: SLEEP DISORDER THERAPY
     Dosage: 1 PILL
     Route: 048
     Dates: start: 20121201, end: 20130107
  25. TYLENOL COLD DAYTIME [Concomitant]
     Indication: NASOPHARYNGITIS
     Dosage: 4 PILLS
     Route: 048
     Dates: start: 20130212, end: 20130213
  26. CEPHALEXIN. [Concomitant]
     Active Substance: CEPHALEXIN
     Indication: BARTHOLIN^S CYST
     Route: 048
     Dates: start: 20130529, end: 20130604

REACTIONS (2)
  - Exposure during pregnancy [Unknown]
  - Furuncle [Unknown]

NARRATIVE: CASE EVENT DATE: 20130417
